FAERS Safety Report 11798291 (Version 1)
Quarter: 2015Q4

REPORT INFORMATION
  Report Type: Spontaneous
  Country: US (occurrence: US)
  Receive Date: 20151203
  Receipt Date: 20151203
  Transmission Date: 20160305
  Serious: Yes (Other)
  Sender: FDA-Public Use
  Company Number: US-REGENERON PHARMACEUTICALS, INC.-2015-10940

PATIENT
  Age: 71 Year
  Sex: Male

DRUGS (2)
  1. EYLEA [Suspect]
     Active Substance: AFLIBERCEPT
     Indication: NEOVASCULAR AGE-RELATED MACULAR DEGENERATION
     Dosage: 2 MG MILLIGRAM(S), MONTHLY OD
     Route: 031
     Dates: start: 2013, end: 20150302
  2. EYLEA [Suspect]
     Active Substance: AFLIBERCEPT
     Dosage: 2 MG MILLIGRAM(S), MONTHLY OS
     Route: 031
     Dates: start: 201407, end: 20150302

REACTIONS (3)
  - Endophthalmitis [Recovering/Resolving]
  - Eye infection staphylococcal [Recovering/Resolving]
  - Hypopyon [Recovering/Resolving]

NARRATIVE: CASE EVENT DATE: 20150228
